FAERS Safety Report 24841836 (Version 1)
Quarter: 2025Q1

REPORT INFORMATION
  Report Type: Spontaneous
  Country: US (occurrence: US)
  Receive Date: 20250114
  Receipt Date: 20250114
  Transmission Date: 20250408
  Serious: Yes (Other)
  Sender: AMGEN
  Company Number: US-AMGEN-USASP2025005489

PATIENT

DRUGS (2)
  1. BEVACIZUMAB [Suspect]
     Active Substance: BEVACIZUMAB
     Indication: Myelodysplastic syndrome
     Dosage: 5 MILLIGRAM/KILOGRAM, Q2WK CYCLE 2 TO 4
     Route: 065
  2. ABALOPARATIDE [Concomitant]
     Active Substance: ABALOPARATIDE
     Indication: Myelodysplastic syndrome
     Dosage: 80 MICROGRAM, QD DURING CYCLE 1
     Route: 065

REACTIONS (1)
  - Myelodysplastic syndrome [Unknown]
